FAERS Safety Report 6253183-5 (Version None)
Quarter: 2009Q3

REPORT INFORMATION
  Report Type: 
  Country: None (occurrence: None)
  Receive Date: 20090701
  Receipt Date: 20090623
  Transmission Date: 20100115
  Serious: Yes (Hospitalization)
  Sender: FDA-Public Use
  Company Number: GB-CELGENEUS-167-C5013-09061608

PATIENT
  Sex: Female
  Weight: 49 kg

DRUGS (1)
  1. CC-5013 [Suspect]
     Dosage: 2-5 MG
     Route: 048
     Dates: start: 20090606, end: 20090622

REACTIONS (2)
  - LOWER RESPIRATORY TRACT INFECTION [None]
  - TUMOUR FLARE [None]
